FAERS Safety Report 8827415 (Version 1)
Quarter: 2012Q4

REPORT INFORMATION
  Report Type: Report from Study
  Country: ZA (occurrence: ZA)
  Receive Date: 20121005
  Receipt Date: 20121005
  Transmission Date: 20130627
  Serious: Yes (Death, Hospitalization)
  Sender: FDA-Public Use
  Company Number: ZA-ASTRAZENECA-2012SE75120

PATIENT
  Age: 19609 Day
  Sex: Male

DRUGS (11)
  1. AZD6140 [Suspect]
     Indication: CORONARY ARTERY DISEASE
     Route: 048
     Dates: start: 20110915, end: 20120906
  2. VOLTAREN [Suspect]
     Indication: GOUT
     Dosage: DAILY OR AS REQUIRED
     Route: 048
  3. ALDACTONE [Concomitant]
     Indication: CARDIAC FAILURE
     Route: 048
  4. SIMVASTATIN [Concomitant]
     Indication: HYPERCHOLESTEROLAEMIA
     Route: 048
  5. CARVEDILOL [Concomitant]
     Indication: CORONARY ARTERY DISEASE
     Route: 048
  6. ENALAPRIL [Concomitant]
     Indication: CORONARY ARTERY DISEASE
     Route: 048
  7. LASIX [Concomitant]
     Indication: CARDIAC FAILURE
     Route: 048
  8. LOSEC [Concomitant]
     Indication: PROPHYLAXIS
     Route: 048
  9. ELANTON [Concomitant]
     Indication: CORONARY ARTERY DISEASE
     Route: 048
  10. COLCHICINE [Concomitant]
     Indication: GOUT
     Route: 048
  11. ASA [Concomitant]
     Route: 048

REACTIONS (1)
  - Gastric ulcer perforation [Fatal]
